FAERS Safety Report 10216802 (Version 2)
Quarter: 2014Q2

REPORT INFORMATION
  Report Type: Spontaneous
  Country: FR (occurrence: FR)
  Receive Date: 20140604
  Receipt Date: 20140604
  Transmission Date: 20141212
  Serious: Yes (Disabling, Other)
  Sender: FDA-Public Use
  Company Number: FR-TEVA-475631ISR

PATIENT
  Sex: Male
  Weight: 90 kg

DRUGS (18)
  1. NAPROXENE SODIQUE TEVA 550 MG [Suspect]
     Indication: ARTHRALGIA
     Dosage: START DATE: SEVEN YEARS AGO, ONE TABLET IN THE MORNING
     Dates: start: 2004
  2. CORTANCYL [Concomitant]
     Indication: RHEUMATOID ARTHRITIS
     Dosage: 5 TO 10 MG DAILY FOR SEVERAL YEARS
  3. LIPANTHYL 200 [Concomitant]
     Indication: HYPERTRIGLYCERIDAEMIA
     Dosage: 200 MILLIGRAM DAILY;
     Dates: start: 2014
  4. TOCILIZUMAB [Concomitant]
     Indication: RHEUMATOID ARTHRITIS
     Route: 041
  5. METOJECT [Concomitant]
  6. SPECIAFOLDINE [Concomitant]
  7. CACIT VITAMINE D3 [Concomitant]
  8. INEXIUM 40MG [Concomitant]
  9. APRANAX 550MG [Concomitant]
  10. VOGALENE [Concomitant]
  11. GAVISCON [Concomitant]
  12. UVEDOSE [Concomitant]
  13. VENTOLINE [Concomitant]
  14. SERETIDE [Concomitant]
  15. SPASFON [Concomitant]
  16. VOLTARENE [Concomitant]
  17. IXPRIM [Concomitant]
  18. TANAKAN [Concomitant]

REACTIONS (2)
  - Tinnitus [Not Recovered/Not Resolved]
  - Dependence [Not Recovered/Not Resolved]
